FAERS Safety Report 4335370-6 (Version None)
Quarter: 2004Q2

REPORT INFORMATION
  Report Type: 
  Country: None (occurrence: None)
  Receive Date: 20040408
  Receipt Date: 20040408
  Transmission Date: 20050107
  Serious: No
  Sender: FDA-Public Use
  Company Number: None

PATIENT
  Sex: Female
  Weight: 141 kg

DRUGS (11)
  1. GLIPIZIDE [Suspect]
     Indication: DIABETES MELLITUS NON-INSULIN-DEPENDENT
     Dosage: 10 MG PO Q DAY
     Route: 048
  2. NAPROXEN [Concomitant]
  3. TRAMADOL HCL [Concomitant]
  4. PROPOXYPHENE [Concomitant]
  5. FLUTICASONE PROPIONATE [Concomitant]
  6. MOMETASONE FUROATE [Concomitant]
  7. HYDROCHLOROTHIAZIDE [Concomitant]
  8. KCL TAB [Concomitant]
  9. ALBUTEROL [Concomitant]
  10. APAP TAB [Concomitant]
  11. CEFIRIZIME [Concomitant]

REACTIONS (2)
  - BLOOD GLUCOSE INCREASED [None]
  - GLYCOSYLATED HAEMOGLOBIN INCREASED [None]
